FAERS Safety Report 5053327-7 (Version None)
Quarter: 2006Q3

REPORT INFORMATION
  Report Type: 
  Country: None (occurrence: None)
  Receive Date: 20060706
  Receipt Date: 20051114
  Transmission Date: 20061208
  Serious: Yes (Hospitalization)
  Sender: FDA-Public Use
  Company Number: 2005BH002955

PATIENT
  Age: 16 Month
  Sex: Male
  Weight: 15.2 kg

DRUGS (1)
  1. ADVATE (OCTOCOG ALFA) [Suspect]
     Indication: HAEMORRHAGE
     Dosage: 934 IU; ONCE; IV
     Route: 042
     Dates: end: 20050904

REACTIONS (2)
  - FALL [None]
  - HAEMATOMA [None]
